FAERS Safety Report 10649385 (Version 1)
Quarter: 2014Q4

REPORT INFORMATION
  Report Type: Spontaneous
  Country: US (occurrence: None)
  Receive Date: 20141211
  Receipt Date: 20141211
  Transmission Date: 20150529
  Serious: Yes (Hospitalization)
  Sender: FDA-Public Use
  Company Number: None

PATIENT
  Age: 89 Year
  Sex: Male
  Weight: 65.2 kg

DRUGS (1)
  1. DALBAVANCIN. [Suspect]
     Active Substance: DALBAVANCIN
     Indication: CELLULITIS
     Route: 042
     Dates: start: 20141028, end: 20141103

REACTIONS (2)
  - Rash macular [None]
  - Rash [None]

NARRATIVE: CASE EVENT DATE: 20141104
